FAERS Safety Report 5900104-8 (Version None)
Quarter: 2008Q3

REPORT INFORMATION
  Report Type: 
  Country: None (occurrence: None)
  Receive Date: 20080926
  Receipt Date: 20080914
  Transmission Date: 20090109
  Serious: Yes (Death)
  Sender: FDA-Public Use
  Company Number: US-JNJCH-2008023991

PATIENT
  Age: 44 Year
  Sex: Male

DRUGS (2)
  1. LISTERINE [Suspect]
     Indication: MOUTH ULCERATION
     Dosage: TEXT:UNSPECIFIED
     Route: 048
  2. BONJELA [Suspect]
     Indication: MOUTH ULCERATION
     Dosage: TEXT:UNSPECIFIED
     Route: 048

REACTIONS (2)
  - LOCAL SWELLING [None]
  - NEOPLASM MALIGNANT [None]
